FAERS Safety Report 4810876-1 (Version None)
Quarter: 2005Q4

REPORT INFORMATION
  Report Type: 
  Country: None (occurrence: None)
  Receive Date: 20051025
  Receipt Date: 20051025
  Transmission Date: 20060501
  Serious: Yes (Hospitalization)
  Sender: FDA-Public Use
  Company Number: None

PATIENT
  Age: 79 Year
  Sex: Male
  Weight: 72 kg

DRUGS (10)
  1. WARFARIN  1MG  BRISTOL MYERS SQUIBB [Suspect]
     Indication: PULMONARY EMBOLISM
     Dosage: 2MG  DAILY PO
     Route: 048
     Dates: start: 20050528, end: 20050908
  2. CETIRIZINE HCL [Concomitant]
  3. DOCUSATE [Concomitant]
  4. FELODIPINE [Concomitant]
  5. FUROSEMIDE [Concomitant]
  6. LISINOPRIL [Concomitant]
  7. LOVASTATIN [Concomitant]
  8. NPH INSULIN [Concomitant]
  9. METOPROLOL [Concomitant]
  10. PANTOPRAZOLE [Concomitant]

REACTIONS (4)
  - CHEST PAIN [None]
  - HAEMATOCRIT DECREASED [None]
  - INTERNATIONAL NORMALISED RATIO INCREASED [None]
  - RECTAL HAEMORRHAGE [None]
